FAERS Safety Report 15625399 (Version 6)
Quarter: 2022Q1

REPORT INFORMATION
  Report Type: Report from Study
  Country: CN (occurrence: None)
  Receive Date: 20181116
  Receipt Date: 20220316
  Transmission Date: 20220424
  Serious: Yes (Hospitalization)
  Sender: FDA-Public Use
  Company Number: CN-ROCHE-2212398

PATIENT
  Age: 49 Year
  Sex: Female
  Weight: 56 kg

DRUGS (25)
  1. ATEZOLIZUMAB [Suspect]
     Active Substance: ATEZOLIZUMAB
     Indication: Ovarian epithelial cancer
     Dosage: ON DAY 1 OF EACH 21 DAY CYCLE. DATE OF MOST RECENT DOSE OF ATEZOLIZUMAB PRIOR TO AE ONSET 10/OCT/201
     Route: 041
     Dates: start: 20180808
  2. BEVACIZUMAB [Suspect]
     Active Substance: BEVACIZUMAB
     Indication: Ovarian epithelial cancer
     Dosage: 930 MG DOSE OF LAST BEVACIZUMAB ADMINISTERED PRIOR TO SAE ONSET 10/OCT/2018.
     Route: 042
     Dates: start: 20180918
  3. CARBOPLATIN [Suspect]
     Active Substance: CARBOPLATIN
     Indication: Ovarian epithelial cancer
     Dosage: ON DAY 1 OF EACH 21 DAY CYCLE FOR A TOTAL OF 6 CYCLES. DATE OF MOST RECENT DOSE OF CARBOPLATIN 767 M
     Route: 042
     Dates: start: 20180808
  4. PACLITAXEL [Suspect]
     Active Substance: PACLITAXEL
     Indication: Ovarian epithelial cancer
     Dosage: ON DAY 1 OF EACH 21-DAY CYCLE. DATE OF MOST RECENT DOSE OF PACLITAXEL (275 MG) PRIOR TO AE ONSET: 10
     Route: 042
     Dates: start: 20180808
  5. DUPHALAC [Concomitant]
     Active Substance: LACTULOSE
     Indication: Constipation
     Route: 048
     Dates: start: 20180806, end: 20181101
  6. URSODIOL [Concomitant]
     Active Substance: URSODIOL
     Dates: start: 20180914, end: 20181101
  7. PHOSPHOLIPID [Concomitant]
     Active Substance: PHOSPHOLIPID
     Dates: start: 20180919, end: 20181101
  8. HERBALS\DIAMMONIUM GLYCYRRHIZINATE [Concomitant]
     Active Substance: HERBALS\DIAMMONIUM GLYCYRRHIZINATE
     Dates: start: 20181006, end: 20181128
  9. SILIBININ [Concomitant]
     Active Substance: SILIBININ
     Dates: start: 20181006, end: 20181128
  10. DEXAMETHASONE ACETATE [Concomitant]
     Active Substance: DEXAMETHASONE ACETATE
     Route: 048
     Dates: start: 20181009, end: 20181010
  11. DEXAMETHASONE SODIUM PHOSPHATE [Concomitant]
     Active Substance: DEXAMETHASONE SODIUM PHOSPHATE
     Route: 042
     Dates: start: 20181010, end: 20181010
  12. PROMETHAZINE HYDROCHLORIDE [Concomitant]
     Active Substance: PROMETHAZINE HYDROCHLORIDE
     Dates: start: 20181010, end: 20181010
  13. METOCLOPRAMIDE DIHYDROCHLORIDE [Concomitant]
     Dates: start: 20181010, end: 20181010
  14. CIMETIDINE [Concomitant]
     Active Substance: CIMETIDINE
     Dates: start: 20181010, end: 20181010
  15. CALCIUM CHLORIDE\POTASSIUM CHLORIDE\SODIUM CHLORIDE [Concomitant]
     Active Substance: CALCIUM CHLORIDE\POTASSIUM CHLORIDE\SODIUM CHLORIDE
     Dates: start: 20181010, end: 20181010
  16. PALONOSETRON HYDROCHLORIDE [Concomitant]
     Active Substance: PALONOSETRON HYDROCHLORIDE
     Dates: start: 20181010, end: 20181010
  17. LEUCOGEN (CHINA) [Concomitant]
     Dates: start: 20181012, end: 20190207
  18. VITAMIN B6 [Concomitant]
     Active Substance: PYRIDOXINE HYDROCHLORIDE
     Indication: Vitamin supplementation
     Dates: start: 20181011, end: 20181011
  19. VITAMIN C [Concomitant]
     Active Substance: ASCORBIC ACID
     Indication: Vitamin supplementation
     Dates: start: 20181011, end: 20181011
  20. POTASSIUM CHLORIDE [Concomitant]
     Active Substance: POTASSIUM CHLORIDE
     Dates: start: 20181011, end: 20181011
  21. PANTOPRAZOLE SODIUM [Concomitant]
     Active Substance: PANTOPRAZOLE SODIUM
     Dates: start: 20181011, end: 20181011
  22. GLUTATHIONE REDUCED [Concomitant]
     Dates: start: 20181011, end: 20181011
  23. GLUTATHIONE REDUCED [Concomitant]
     Dates: start: 20180930, end: 20181005
  24. GLYCYRRHIZIN [Concomitant]
     Active Substance: GLYCYRRHIZIN
     Dates: start: 20181011, end: 20181012
  25. DEXTROSE [Concomitant]
     Active Substance: DEXTROSE
     Dates: start: 20181011, end: 20181012

REACTIONS (1)
  - Ileus [Recovered/Resolved]

NARRATIVE: CASE EVENT DATE: 20181101
